FAERS Safety Report 12558109 (Version 2)
Quarter: 2017Q1

REPORT INFORMATION
  Report Type: Spontaneous
  Country: US (occurrence: US)
  Receive Date: 20160714
  Receipt Date: 20170109
  Transmission Date: 20170428
  Serious: No
  Sender: FDA-Public Use
  Company Number: US-CELGENEUS-USA-2016071951

PATIENT
  Sex: Female

DRUGS (2)
  1. OTEZLA [Suspect]
     Active Substance: APREMILAST
     Indication: DERMATITIS ATOPIC
     Dosage: 60MG
     Route: 048
     Dates: start: 20160427
  2. OTEZLA [Suspect]
     Active Substance: APREMILAST
     Dosage: 10MG
     Route: 048
     Dates: start: 20160523, end: 20160614

REACTIONS (5)
  - Nausea [Unknown]
  - Headache [Recovered/Resolved]
  - Feeling abnormal [Unknown]
  - Urinary tract infection [Unknown]
  - Fatigue [Unknown]

NARRATIVE: CASE EVENT DATE: 2016
